FAERS Safety Report 21655376 (Version 1)
Quarter: 2022Q4

REPORT INFORMATION
  Report Type: Spontaneous
  Country: CN (occurrence: None)
  Receive Date: 20221129
  Receipt Date: 20221129
  Transmission Date: 20230113
  Serious: Yes (Other)
  Sender: FDA-Public Use
  Company Number: CN-ROCHE-3225526

PATIENT
  Age: 58 Year
  Sex: Female

DRUGS (13)
  1. TRASTUZUMAB [Suspect]
     Active Substance: TRASTUZUMAB
     Indication: Breast cancer
     Dosage: SINGLE AGENT
     Route: 065
  2. TRASTUZUMAB [Suspect]
     Active Substance: TRASTUZUMAB
     Dosage: TRASTUZUMAB+GP REGIMEN
     Route: 065
     Dates: start: 201912
  3. TRASTUZUMAB [Suspect]
     Active Substance: TRASTUZUMAB
     Dosage: DOCETAXEL + CISPLATIN + TRASTUZUMAB
     Route: 065
     Dates: start: 202108
  4. TRASTUZUMAB [Suspect]
     Active Substance: TRASTUZUMAB
     Dosage: TRASTUZUMAB+PERTUZUMAB+ALBUMIN BOUND PACLITAXEL ,D1, 3 WEEKS AS A CYCLE FOR 3?CYCLES
     Route: 065
     Dates: start: 20211109
  5. TRASTUZUMAB [Suspect]
     Active Substance: TRASTUZUMAB
     Dosage: PERTUZUMAB + TRASTUZUMAB + DOCETAXEL,D1, FROM 16-JAN-2022 TO 04- MAR-2022, 3 WEEKS AS A CYCLE FOR 3
     Route: 065
     Dates: start: 20220116
  6. PERTUZUMAB [Concomitant]
     Active Substance: PERTUZUMAB
     Indication: Breast cancer
     Dosage: PERTUZUMAB + TRASTUZUMAB + PACLITAXEL ALBUMIN BOUND, D1, 3 WEEKS AS A CYCLE FOR 3 CYCLES
     Dates: start: 20211109
  7. PERTUZUMAB [Concomitant]
     Active Substance: PERTUZUMAB
     Dosage: PERTUZUMAB + TRASTUZUMAB + DOCETAXEL, D1, FROM 16-JAN-2022 TO 04-MAR-2022, 3?WEEKS AS A CYCLE FOR 3
     Dates: start: 20220116
  8. EXEMESTANE [Concomitant]
     Active Substance: EXEMESTANE
     Indication: Breast cancer
     Dosage: POSTOPERATIVE SELF-ADMINISTRATION
     Route: 048
  9. GEMCITABINE [Concomitant]
     Active Substance: GEMCITABINE
     Indication: Breast cancer
     Dosage: TRASTUZUMAB +GP REGIMEN
  10. CISPLATIN [Concomitant]
     Active Substance: CISPLATIN
     Indication: Breast cancer
     Dosage: TRASTUZUMAB +GP REGIMEN,DOCETAXEL + CISPLATIN + HERCEPTIN
     Dates: start: 202108
  11. DOCETAXEL [Concomitant]
     Active Substance: DOCETAXEL
     Indication: Breast cancer
     Dosage: DOCETAXEL + CISPLATIN + HERCEPTIN
  12. DOCETAXEL [Concomitant]
     Active Substance: DOCETAXEL
     Dosage: FROM 16 JAN 2022 TO 04 MAR 2022 ,TRASTUZUMAB + PERTUZUMAB + DOCETAXEL, D1, 3?WEEKS AS A CYCLE
     Dates: start: 20220116
  13. PACLITAXEL [Concomitant]
     Active Substance: PACLITAXEL
     Indication: Breast cancer
     Dosage: TRASTUZUMAB+PERTUZUMAB+PACLITAXEL ALBUMIN BOUND, D1, 3 WEEKS AS A CYCLE FOR 3?CYCLES
     Dates: start: 20211109

REACTIONS (6)
  - Palpitations [Unknown]
  - Hypersensitivity [Unknown]
  - Myelosuppression [Unknown]
  - Fatigue [Unknown]
  - Decreased appetite [Unknown]
  - Neuritis [Unknown]
